FAERS Safety Report 12114238 (Version 2)
Quarter: 2016Q1

REPORT INFORMATION
  Report Type: Spontaneous
  Country: JP (occurrence: JP)
  Receive Date: 20160225
  Receipt Date: 20160315
  Transmission Date: 20160526
  Serious: Yes (Other)
  Sender: FDA-Public Use
  Company Number: JP-PFIZER INC-2015433835

PATIENT
  Age: 56 Year
  Sex: Male
  Weight: 61 kg

DRUGS (2)
  1. BENEFIX [Suspect]
     Active Substance: COAGULATION FACTOR IX RECOMBINANT HUMAN\ISOPROPYL ALCOHOL
     Indication: PROPHYLAXIS
     Dosage: 25 IU/KG, ONCE PER 1 TO 3 DAYS
     Dates: start: 20130802, end: 20130819
  2. BENEFIX [Suspect]
     Active Substance: COAGULATION FACTOR IX RECOMBINANT HUMAN\ISOPROPYL ALCOHOL
     Indication: FACTOR IX DEFICIENCY
     Dosage: 1500 IU, WEEKLY
     Route: 042
     Dates: start: 20100609

REACTIONS (3)
  - Soft tissue haemorrhage [Recovered/Resolved]
  - Spinal compression fracture [Unknown]
  - Injury [Unknown]

NARRATIVE: CASE EVENT DATE: 20130822
